FAERS Safety Report 18399945 (Version 3)
Quarter: 2020Q4

REPORT INFORMATION
  Report Type: Spontaneous
  Country: DZ (occurrence: DZ)
  Receive Date: 20201019
  Receipt Date: 20201229
  Transmission Date: 20210114
  Serious: Yes (Hospitalization, Other)
  Sender: FDA-Public Use
  Company Number: DZ-AMGEN-DZASP2020166995

PATIENT
  Age: 74 Year
  Sex: Male

DRUGS (8)
  1. NPLATE [Suspect]
     Active Substance: ROMIPLOSTIM
     Dosage: 2 MICROGRAM/KILOGRAM
     Route: 058
  2. NPLATE [Suspect]
     Active Substance: ROMIPLOSTIM
     Dosage: UNK UNK, 2-3 MICROGRAM/KILOGRAM, Q2WK
     Route: 058
     Dates: start: 20201021
  3. NPLATE [Suspect]
     Active Substance: ROMIPLOSTIM
     Indication: IMMUNE THROMBOCYTOPENIA
     Dosage: 10 MICROGRAM/KILOGRAM
     Route: 058
     Dates: start: 201801
  4. HYDROXYCHLOROQUINE [Suspect]
     Active Substance: HYDROXYCHLOROQUINE
     Indication: SARS-COV-2 TEST POSITIVE
     Dosage: 200 MILLIGRAM, BID
     Route: 065
  5. NPLATE [Suspect]
     Active Substance: ROMIPLOSTIM
     Dosage: 1 MICROGRAM/KILOGRAM
     Route: 058
  6. NPLATE [Suspect]
     Active Substance: ROMIPLOSTIM
     Dosage: 5 MICROGRAM/KILOGRAM
     Route: 058
  7. HYDROXYCHLOROQUINE [Suspect]
     Active Substance: HYDROXYCHLOROQUINE
     Indication: COVID-19
     Dosage: 400 MILLIGRAM, QD
     Route: 065
     Dates: start: 20200923
  8. NPLATE [Suspect]
     Active Substance: ROMIPLOSTIM
     Dosage: 10 MICROGRAM/KILOGRAM
     Route: 058
     Dates: end: 20200930

REACTIONS (7)
  - COVID-19 [Recovered/Resolved]
  - Partial seizures [Unknown]
  - Ischaemic stroke [Unknown]
  - Haemorrhagic disorder [Unknown]
  - Hemiparesis [Unknown]
  - Platelet count decreased [Recovered/Resolved]
  - Tremor [Unknown]

NARRATIVE: CASE EVENT DATE: 2020
